FAERS Safety Report 21522052 (Version 1)
Quarter: 2022Q4

REPORT INFORMATION
  Report Type: Spontaneous
  Country: AT (occurrence: AT)
  Receive Date: 20221028
  Receipt Date: 20221028
  Transmission Date: 20230113
  Serious: Yes (Other)
  Sender: FDA-Public Use
  Company Number: AT-VELOXIS PHARMACEUTICALS, INC.-2022-VEL-00698

PATIENT
  Age: 25 Year
  Sex: Female

DRUGS (9)
  1. TACROLIMUS [Suspect]
     Active Substance: TACROLIMUS
     Indication: Prophylaxis against transplant rejection
     Dosage: TARGET TROUGH LEVEL 12-15.5 NG/ML
  2. TACROLIMUS [Suspect]
     Active Substance: TACROLIMUS
     Dosage: 0.05 UNK
  3. TACROLIMUS [Suspect]
     Active Substance: TACROLIMUS
     Dosage: PERIPARTAL DOSAGE 0.07 MG/KG (PREPARTAL TAC LEVEL 4.3 NG/ML)
  4. PREDNISOLONE [Suspect]
     Active Substance: PREDNISOLONE
     Indication: Prophylaxis against transplant rejection
     Dosage: 2.5 MILLIGRAM
  5. AZATHIOPRINE [Suspect]
     Active Substance: AZATHIOPRINE
     Indication: Prophylaxis against transplant rejection
     Dosage: 1.0 MG/KG
  6. MYCOPHENOLATE MOFETIL [Suspect]
     Active Substance: MYCOPHENOLATE MOFETIL
     Indication: Prophylaxis against transplant rejection
     Dosage: 2 GRAM
  7. MYCOPHENOLATE MOFETIL [Suspect]
     Active Substance: MYCOPHENOLATE MOFETIL
     Dosage: 1.5 GRAM
  8. MYCOPHENOLATE MOFETIL [Suspect]
     Active Substance: MYCOPHENOLATE MOFETIL
     Dosage: RE-CONVERSION INTENDING NO SUBSEQUENT PREGNANCY
  9. THYMOGLOBULIN [Suspect]
     Active Substance: LAPINE T-LYMPHOCYTE IMMUNE GLOBULIN
     Indication: Prophylaxis against transplant rejection
     Dosage: 4 UNK

REACTIONS (13)
  - Urosepsis [Recovered/Resolved]
  - Urosepsis [Recovered/Resolved]
  - Polyomavirus viraemia [Recovered/Resolved]
  - Cystitis [Recovered/Resolved]
  - Cystitis [Recovered/Resolved]
  - Cystitis [Recovered/Resolved]
  - Cystitis [Recovered/Resolved]
  - Cystitis [Recovered/Resolved]
  - Cystitis [Recovered/Resolved]
  - Bronchitis [Recovered/Resolved]
  - Tonsillitis [Recovered/Resolved]
  - Maternal exposure during pregnancy [Recovered/Resolved]
  - Off label use [Unknown]
